FAERS Safety Report 26100700 (Version 1)
Quarter: 2025Q4

REPORT INFORMATION
  Report Type: Spontaneous
  Country: MY (occurrence: MY)
  Receive Date: 20251128
  Receipt Date: 20251128
  Transmission Date: 20260118
  Serious: Yes (Hospitalization)
  Sender: IPCA
  Company Number: MY-IPCA LABORATORIES LIMITED-IPC-2025-MY-003177

PATIENT

DRUGS (4)
  1. METOCLOPRAMIDE [Suspect]
     Active Substance: METOCLOPRAMIDE
     Indication: Product used for unknown indication
     Dosage: UNK
     Route: 042
  2. METOCLOPRAMIDE [Suspect]
     Active Substance: METOCLOPRAMIDE
     Dosage: 30 MILLIGRAM, QD
     Route: 042
  3. PROCHLORPERAZINE [Suspect]
     Active Substance: PROCHLORPERAZINE
     Indication: Product used for unknown indication
     Dosage: UNK
     Route: 065
  4. CINNARIZINE [Suspect]
     Active Substance: CINNARIZINE
     Indication: Product used for unknown indication
     Dosage: UNK
     Route: 065

REACTIONS (7)
  - Movement disorder [Recovered/Resolved]
  - Tremor [Recovered/Resolved]
  - Cogwheel rigidity [Recovered/Resolved]
  - Joint stiffness [Recovered/Resolved]
  - Anxiety [Recovered/Resolved]
  - Gait disturbance [Recovered/Resolved]
  - Fall [Unknown]
